FAERS Safety Report 19125856 (Version 1)
Quarter: 2021Q2

REPORT INFORMATION
  Report Type: Spontaneous
  Country: US (occurrence: US)
  Receive Date: 20210412
  Receipt Date: 20210412
  Transmission Date: 20210717
  Serious: Yes (Death, Hospitalization)
  Sender: FDA-Public Use
  Company Number: None

PATIENT
  Age: 68 Year
  Sex: Male

DRUGS (1)
  1. TECARTUS [Suspect]
     Active Substance: BREXUCABTAGENE AUTOLEUCEL
     Indication: MANTLE CELL LYMPHOMA
     Dates: start: 20210217, end: 20210217

REACTIONS (9)
  - Pyrexia [None]
  - Haemophagocytic lymphohistiocytosis [None]
  - Immune effector cell-associated neurotoxicity syndrome [None]
  - Hypofibrinogenaemia [None]
  - Serum ferritin increased [None]
  - Bone marrow failure [None]
  - Cytokine release syndrome [None]
  - Blood triglycerides increased [None]
  - Cytopenia [None]

NARRATIVE: CASE EVENT DATE: 20210327
